FAERS Safety Report 9423922 (Version 1)
Quarter: 2013Q3

REPORT INFORMATION
  Report Type: Spontaneous
  Country: US (occurrence: US)
  Receive Date: 20130729
  Receipt Date: 20130729
  Transmission Date: 20140515
  Serious: No
  Sender: FDA-Public Use
  Company Number: US-BIOGENIDEC-2013BI068984

PATIENT
  Sex: Female

DRUGS (1)
  1. AVONEX [Suspect]
     Indication: MULTIPLE SCLEROSIS
     Route: 030
     Dates: start: 20090831

REACTIONS (5)
  - Tremor [Unknown]
  - Crying [Unknown]
  - Parkinson^s disease [Unknown]
  - Arthritis [Unknown]
  - Rash macular [Unknown]
